FAERS Safety Report 10383667 (Version 1)
Quarter: 2014Q3

REPORT INFORMATION
  Report Type: Spontaneous
  Country: US (occurrence: None)
  Receive Date: 20140811
  Receipt Date: 20140811
  Transmission Date: 20150326
  Serious: Yes (Other)
  Sender: FDA-Public Use
  Company Number: 2014VER00133

PATIENT
  Age: 19 Year
  Sex: Female

DRUGS (1)
  1. MYORISAN [Suspect]
     Active Substance: ISOTRETINOIN
     Dates: start: 20140507, end: 20140630

REACTIONS (3)
  - Selective abortion [None]
  - Pregnancy test positive [None]
  - Exposure during pregnancy [None]

NARRATIVE: CASE EVENT DATE: 20140526
